FAERS Safety Report 7436706-X (Version None)
Quarter: 2011Q2

REPORT INFORMATION
  Report Type: 
  Country: None (occurrence: None)
  Receive Date: 20110418
  Receipt Date: 20110401
  Transmission Date: 20111010
  Serious: Yes (Other)
  Sender: FDA-Public Use
  Company Number: AE 2011-158

PATIENT
  Age: 37 Year
  Sex: Male

DRUGS (1)
  1. CLOZAPINE [Suspect]

REACTIONS (3)
  - COLITIS MICROSCOPIC [None]
  - WEIGHT DECREASED [None]
  - FAECAL INCONTINENCE [None]
